FAERS Safety Report 7676538-0 (Version None)
Quarter: 2011Q3

REPORT INFORMATION
  Report Type: 
  Country: None (occurrence: None)
  Receive Date: 20110809
  Receipt Date: 20110809
  Transmission Date: 20111222
  Serious: Yes (Hospitalization, Other)
  Sender: FDA-Public Use
  Company Number: None

PATIENT
  Age: 69 Year
  Sex: Female

DRUGS (8)
  1. CALCIUM CARBONATE (CALCIUM CARBONATE) (CALCIUM CARBONATE) [Concomitant]
  2. METHOTREXATE SODIUM [Concomitant]
  3. ACETAMINOPHEN (PARACETAMOL) PARACETAMOL) [Concomitant]
  4. OMEPRAZOLE [Concomitant]
  5. PREDNISONE [Concomitant]
  6. INDOCIN [Suspect]
     Indication: RHEUMATOID ARTHRITIS
     Dosage: 75MG (25 MG, 3 IN 1 D) ORAL
     Route: 048
     Dates: start: 20081206
  7. INDOCIN [Suspect]
     Indication: RHEUMATOID ARTHRITIS
     Dosage: 75MG (25 MG, 3 IN 1 D) ORAL
     Route: 048
     Dates: start: 20090121
  8. FOLIC ACID [Concomitant]

REACTIONS (4)
  - HYPOTENSION [None]
  - DUODENAL ULCER HAEMORRHAGE [None]
  - PYELONEPHRITIS ACUTE [None]
  - RENAL FAILURE ACUTE [None]
